FAERS Safety Report 18993306 (Version 2)
Quarter: 2021Q2

REPORT INFORMATION
  Report Type: Report from Study
  Country: US (occurrence: US)
  Receive Date: 20210310
  Receipt Date: 20210408
  Transmission Date: 20210717
  Serious: No
  Sender: FDA-Public Use
  Company Number: US-LUNDBECK-DKLU3029432

PATIENT
  Age: 50 Year
  Sex: Female

DRUGS (1)
  1. VYEPTI [Suspect]
     Active Substance: EPTINEZUMAB-JJMR
     Indication: MIGRAINE
     Route: 041
     Dates: start: 20210211

REACTIONS (9)
  - Feeling drunk [Unknown]
  - Dizziness [Recovered/Resolved]
  - Paraesthesia [Unknown]
  - Head discomfort [Unknown]
  - Mania [Unknown]
  - Fatigue [Unknown]
  - Restlessness [Unknown]
  - Obsessive-compulsive symptom [Unknown]
  - Vertigo [Unknown]

NARRATIVE: CASE EVENT DATE: 202102
